FAERS Safety Report 8990721 (Version 1)
Quarter: 2012Q4

REPORT INFORMATION
  Report Type: 
  Country: US (occurrence: US)
  Receive Date: 20121228
  Receipt Date: 20121228
  Transmission Date: 20130627
  Serious: No
  Sender: FDA-Public Use
  Company Number: US-PFIZER INC-2012331217

PATIENT
  Age: 39 Year
  Sex: Male
  Weight: 104 kg

DRUGS (7)
  1. NEURONTIN [Suspect]
     Indication: ALCOHOLIC POLYNEUROPATHY
     Dosage: 900 mg, 2x/day
     Dates: end: 20120912
  2. NEURONTIN [Suspect]
     Indication: PAIN IN LEG
  3. LYRICA [Suspect]
     Indication: ALCOHOLIC POLYNEUROPATHY
     Dosage: UNK
     Dates: start: 20120912
  4. POTASSIUM CHLORIDE [Suspect]
     Indication: HYPOGLYCEMIA
     Dosage: UNK, 2x/day
  5. AMITRIPTYLINE [Concomitant]
     Indication: ALCOHOLIC POLYNEUROPATHY
     Dosage: 150 mg, 2x/day
  6. CIPROFLOXACIN [Concomitant]
     Indication: SPONTANEOUS BACTERIAL PERITONITIS
     Dosage: 150 mg, weekly
  7. IRON [Concomitant]
     Dosage: UNK

REACTIONS (2)
  - Drug ineffective [Unknown]
  - Blood potassium decreased [Unknown]
